FAERS Safety Report 17834841 (Version 1)
Quarter: 2020Q2

REPORT INFORMATION
  Report Type: Spontaneous
  Country: AU (occurrence: AU)
  Receive Date: 20200528
  Receipt Date: 20200528
  Transmission Date: 20200714
  Serious: Yes (Other)
  Sender: FDA-Public Use
  Company Number: NVSC2020AU139649

PATIENT
  Age: 42 Year
  Sex: Female

DRUGS (9)
  1. ACETAMINOPHEN (PARACETAMOL) [Suspect]
     Active Substance: ACETAMINOPHEN
     Indication: PRODUCT USED FOR UNKNOWN INDICATION
     Dosage: UNK
     Route: 065
  2. ESTRADIOL. [Suspect]
     Active Substance: ESTRADIOL
     Indication: PRODUCT USED FOR UNKNOWN INDICATION
     Dosage: UNK
     Route: 065
  3. FENTANYL. [Suspect]
     Active Substance: FENTANYL
     Indication: PRODUCT USED FOR UNKNOWN INDICATION
     Dosage: UNK
     Route: 065
  4. LORATADINE. [Suspect]
     Active Substance: LORATADINE
     Indication: PRODUCT USED FOR UNKNOWN INDICATION
     Dosage: UNK
     Route: 065
  5. VOLTAREN [Suspect]
     Active Substance: DICLOFENAC SODIUM
     Indication: PRODUCT USED FOR UNKNOWN INDICATION
     Dosage: UNK
     Route: 065
  6. GILENYA [Suspect]
     Active Substance: FINGOLIMOD HYDROCHLORIDE
     Indication: PRODUCT USED FOR UNKNOWN INDICATION
     Dosage: UNK
     Route: 065
  7. TRAMADOL HYDROCHLORIDE. [Suspect]
     Active Substance: TRAMADOL HYDROCHLORIDE
     Indication: PRODUCT USED FOR UNKNOWN INDICATION
     Dosage: UNK
     Route: 065
  8. OXYCODONE [Suspect]
     Active Substance: OXYCODONE
     Indication: PRODUCT USED FOR UNKNOWN INDICATION
     Dosage: UNK
     Route: 065
  9. RAMIPRIL. [Suspect]
     Active Substance: RAMIPRIL
     Indication: PRODUCT USED FOR UNKNOWN INDICATION
     Dosage: UNK
     Route: 065

REACTIONS (24)
  - Diabetic retinopathy [Unknown]
  - Paraesthesia [Unknown]
  - Episcleritis [Unknown]
  - Diabetes mellitus inadequate control [Unknown]
  - Eye haemorrhage [Unknown]
  - Thermal burn [Unknown]
  - Alanine aminotransferase increased [Unknown]
  - Dizziness postural [Unknown]
  - Psoriasis [Unknown]
  - Tinea infection [Unknown]
  - Vision blurred [Unknown]
  - Cystoid macular oedema [Unknown]
  - Cataract subcapsular [Unknown]
  - Eye pain [Unknown]
  - Sensory disturbance [Unknown]
  - Diabetic retinal oedema [Unknown]
  - Macular oedema [Unknown]
  - Gamma-glutamyltransferase [Unknown]
  - Lymphocyte count decreased [Unknown]
  - Tinea pedis [Unknown]
  - Burning sensation [Unknown]
  - Headache [Unknown]
  - Multiple lentigines syndrome [Unknown]
  - Fatigue [Unknown]
